FAERS Safety Report 21184800 (Version 2)
Quarter: 2022Q3

REPORT INFORMATION
  Report Type: Spontaneous
  Country: US (occurrence: US)
  Receive Date: 20220808
  Receipt Date: 20220817
  Transmission Date: 20221027
  Serious: No
  Sender: FDA-Public Use
  Company Number: US-009507513-2208USA001174

PATIENT
  Sex: Female
  Weight: 86.168 kg

DRUGS (11)
  1. PRINIVIL [Suspect]
     Active Substance: LISINOPRIL
     Dosage: UNK
  2. OMEPRAZOLE [Concomitant]
     Active Substance: OMEPRAZOLE
     Dosage: UNK
  3. ASPIRIN [Concomitant]
     Active Substance: ASPIRIN
     Dosage: UNK
  4. HYDROCHLOROTHIAZIDE\TRIAMTERENE [Concomitant]
     Active Substance: HYDROCHLOROTHIAZIDE\TRIAMTERENE
     Dosage: 25 MG / 37.5 MG
  5. ROSUVASTATIN [Concomitant]
     Active Substance: ROSUVASTATIN
  6. PREGABALIN [Concomitant]
     Active Substance: PREGABALIN
  7. MELOXICAM [Concomitant]
     Active Substance: MELOXICAM
  8. LINZESS [Concomitant]
     Active Substance: LINACLOTIDE
  9. CLONIDINE [Concomitant]
     Active Substance: CLONIDINE
  10. DILTIAZEM [Concomitant]
     Active Substance: DILTIAZEM
  11. ACETAMINOPHEN [Concomitant]
     Active Substance: ACETAMINOPHEN

REACTIONS (1)
  - Swollen tongue [Unknown]
